FAERS Safety Report 4755078-2 (Version None)
Quarter: 2005Q3

REPORT INFORMATION
  Report Type: 
  Country: None (occurrence: None)
  Receive Date: 20050826
  Receipt Date: 19960910
  Transmission Date: 20060218
  Serious: Yes (Hospitalization)
  Sender: FDA-Public Use
  Company Number: KII-1996-0015271

PATIENT
  Sex: Male

DRUGS (1)
  1. OXYCONTIN [Suspect]
     Dosage: SEE TEXT

REACTIONS (3)
  - ACCIDENTAL OVERDOSE [None]
  - DEPRESSED LEVEL OF CONSCIOUSNESS [None]
  - RESPIRATORY DEPRESSION [None]
